FAERS Safety Report 21056390 (Version 2)
Quarter: 2022Q3

REPORT INFORMATION
  Report Type: Report from Study
  Country: CN (occurrence: CN)
  Receive Date: 20220708
  Receipt Date: 20220822
  Transmission Date: 20221027
  Serious: Yes (Life-Threatening, Hospitalization)
  Sender: FDA-Public Use
  Company Number: CN-ELI_LILLY_AND_COMPANY-CN202202004287

PATIENT
  Age: 72 Year
  Sex: Male

DRUGS (24)
  1. GEMCITABINE HYDROCHLORIDE [Suspect]
     Active Substance: GEMCITABINE HYDROCHLORIDE
     Indication: Non-small cell lung cancer stage II
     Dosage: 1250 MG/M2, 3/W
     Route: 042
     Dates: start: 20220120, end: 20220120
  2. GEMCITABINE HYDROCHLORIDE [Suspect]
     Active Substance: GEMCITABINE HYDROCHLORIDE
     Indication: Non-small cell lung cancer stage III
     Dosage: 1250 MG/M2, 3/W
     Route: 042
     Dates: start: 20220127, end: 20220127
  3. GEMCITABINE HYDROCHLORIDE [Suspect]
     Active Substance: GEMCITABINE HYDROCHLORIDE
     Dosage: 1250 MG/M2, 3/W
     Route: 042
     Dates: start: 20220303, end: 20220303
  4. GEMCITABINE HYDROCHLORIDE [Suspect]
     Active Substance: GEMCITABINE HYDROCHLORIDE
     Dosage: 1250 MG/M2, 3/W
     Route: 042
     Dates: start: 20220310, end: 20220310
  5. GEMCITABINE HYDROCHLORIDE [Suspect]
     Active Substance: GEMCITABINE HYDROCHLORIDE
     Dosage: 1250 MG/M2, 3/W
     Route: 042
     Dates: start: 20220408, end: 20220408
  6. GEMCITABINE HYDROCHLORIDE [Suspect]
     Active Substance: GEMCITABINE HYDROCHLORIDE
     Dosage: 1250 MG/M2, 3/W
     Route: 042
     Dates: start: 20220415, end: 20220415
  7. DURVALUMAB [Concomitant]
     Active Substance: DURVALUMAB
     Indication: Non-small cell lung cancer stage II
     Dosage: 1500 MG, EACH 3 WEEKS
     Route: 042
     Dates: start: 20220120, end: 20220120
  8. DURVALUMAB [Concomitant]
     Active Substance: DURVALUMAB
     Indication: Non-small cell lung cancer stage III
     Dosage: 1500 MG, CYCLICAL (EACH 3 WEEKS)
     Route: 042
     Dates: start: 20220127, end: 20220127
  9. DURVALUMAB [Concomitant]
     Active Substance: DURVALUMAB
     Dosage: 1500 MG, CYCLICAL (EACH 3 WEEKS)
     Route: 042
     Dates: start: 20220303, end: 20220303
  10. DURVALUMAB [Concomitant]
     Active Substance: DURVALUMAB
     Dosage: 1500 MG, CYCLICAL (EACH 3 WEEKS)
     Route: 042
     Dates: start: 20220310, end: 20220310
  11. DURVALUMAB [Concomitant]
     Active Substance: DURVALUMAB
     Dosage: 1500 MG, CYCLICAL (EACH 3 WEEKS)
     Route: 042
     Dates: start: 20220408, end: 20220408
  12. DURVALUMAB [Concomitant]
     Active Substance: DURVALUMAB
     Dosage: 1500 MG, CYCLICAL (EACH 3 WEEKS)
     Route: 042
     Dates: start: 20220415, end: 20220415
  13. CARBOPLATIN [Concomitant]
     Active Substance: CARBOPLATIN
     Indication: Non-small cell lung cancer stage II
     Dosage: 5 AUC, CYCLICAL (EVERY THREE WEEKS)
     Route: 042
     Dates: start: 20220120, end: 20220121
  14. CARBOPLATIN [Concomitant]
     Active Substance: CARBOPLATIN
     Indication: Non-small cell lung cancer stage III
     Dosage: 5 AUC, CYCLICAL (EVERY THREE WEEKS)
     Route: 042
     Dates: start: 20220303, end: 20220303
  15. CARBOPLATIN [Concomitant]
     Active Substance: CARBOPLATIN
     Dosage: 5 AUC, CYCLICAL (EVERY THREE WEEKS)
     Route: 042
     Dates: start: 20220408, end: 20220408
  16. PALONOSETRON HYDROCHLORIDE [Concomitant]
     Active Substance: PALONOSETRON HYDROCHLORIDE
     Indication: Prophylaxis of nausea and vomiting
     Dosage: 225 MG, DAILY
     Route: 042
     Dates: start: 20220120, end: 20220120
  17. PALONOSETRON HYDROCHLORIDE [Concomitant]
     Active Substance: PALONOSETRON HYDROCHLORIDE
     Dosage: 225 MG, DAILY
     Route: 042
     Dates: start: 20220121, end: 20220128
  18. RANITIDINE HYDROCHLORIDE [Concomitant]
     Active Substance: RANITIDINE HYDROCHLORIDE
     Indication: Protein total
     Dosage: 50 MG, BID
     Route: 042
     Dates: start: 20220120, end: 20220120
  19. RANITIDINE HYDROCHLORIDE [Concomitant]
     Active Substance: RANITIDINE HYDROCHLORIDE
     Dosage: 50 MG, BID
     Route: 042
     Dates: start: 20220121, end: 20220128
  20. VITAMIN C [Concomitant]
     Active Substance: ASCORBIC ACID
     Indication: Vitamin supplementation
     Dosage: 1 G, DAILY
     Route: 042
     Dates: start: 20220120, end: 20220128
  21. VITAMIN B6 [Concomitant]
     Active Substance: PYRIDOXINE HYDROCHLORIDE
     Indication: Vitamin supplementation
     Dosage: 100 MG, DAILY
     Route: 042
     Dates: start: 20220120, end: 20220128
  22. GLYCERIN [Concomitant]
     Active Substance: GLYCERIN
     Indication: Constipation
     Dosage: 40 ML, SINGLE
     Route: 054
     Dates: start: 20220123, end: 20220123
  23. PEGYLATED RECOMBINANT HUMAN GRANULOCYTE COLON [Concomitant]
     Indication: White blood cell count decreased
     Dosage: UNK, DAILY
     Route: 058
     Dates: start: 20220125, end: 20220127
  24. PEGYLATED RECOMBINANT HUMAN GRANULOCYTE COLON [Concomitant]
     Indication: Neutrophil count decreased

REACTIONS (1)
  - Myelosuppression [Recovered/Resolved]

NARRATIVE: CASE EVENT DATE: 20220131
